FAERS Safety Report 8591401-9 (Version None)
Quarter: 2012Q3

REPORT INFORMATION
  Report Type: 
  Country: None (occurrence: None)
  Receive Date: 20120803
  Receipt Date: 20120803
  Transmission Date: 20120928
  Serious: Yes (Life-Threatening)
  Sender: FDA-Public Use
  Company Number: None

PATIENT
  Sex: Female
  Weight: 60.782 kg

DRUGS (1)
  1. METHENAMINE MANDELATE 1 GRAM SANOFI AVENTIS [Suspect]
     Indication: URINARY TRACT INFECTION
     Dosage: 1 GRAM TID PO
     Route: 048
     Dates: start: 20110601, end: 20120731

REACTIONS (1)
  - CHRONIC MYELOID LEUKAEMIA [None]
